FAERS Safety Report 5082476-2 (Version None)
Quarter: 2006Q3

REPORT INFORMATION
  Report Type: 
  Country: None (occurrence: None)
  Receive Date: 20060817
  Receipt Date: 20060719
  Transmission Date: 20061208
  Serious: Yes (Hospitalization, Other)
  Sender: FDA-Public Use
  Company Number: PHFR2006GB02286

PATIENT
  Age: 36 Year
  Sex: Female

DRUGS (10)
  1. CLOZARIL [Suspect]
     Indication: SCHIZOPHRENIA
     Dosage: 250MG / DAY
     Route: 048
     Dates: start: 20060605, end: 20060713
  2. METFORMIN HCL [Suspect]
     Dosage: 1500MG/DAY
     Route: 048
  3. PERINDOPRIL ERBUMINE [Suspect]
     Dosage: 2 MG, QD
     Route: 048
  4. LANSOPRAZOLE [Suspect]
     Dosage: 30 MG, QD
     Route: 048
  5. FESOFOR [Suspect]
     Dosage: 200 MG, BID
     Route: 048
  6. FOLIC ACID [Suspect]
     Dosage: 5 MG, QD
     Route: 048
  7. TRIMETHOPRIM [Suspect]
     Indication: URINARY TRACT INFECTION
     Route: 065
  8. DIAZEPAM [Suspect]
     Dosage: PRN
     Route: 065
  9. ZOPICLONE [Suspect]
     Dosage: 3.75MG NOCTE
     Route: 065
  10. LACTULOSE [Suspect]
     Dosage: 10 ML, PRN
     Route: 065

REACTIONS (13)
  - ABDOMINAL TENDERNESS [None]
  - CARDIAC MURMUR [None]
  - CONSTIPATION [None]
  - MALAISE [None]
  - MEAN CELL VOLUME DECREASED [None]
  - MONOCYTE COUNT INCREASED [None]
  - NEUTROPHIL COUNT INCREASED [None]
  - PYREXIA [None]
  - SINUS TACHYCARDIA [None]
  - SKIN DISORDER [None]
  - STAPHYLOCOCCAL INFECTION [None]
  - URINARY TRACT INFECTION [None]
  - WHITE BLOOD CELL COUNT INCREASED [None]
